FAERS Safety Report 6084528-7 (Version None)
Quarter: 2009Q1

REPORT INFORMATION
  Report Type: 
  Country: None (occurrence: None)
  Receive Date: 20090219
  Receipt Date: 20090209
  Transmission Date: 20090719
  Serious: Yes (Hospitalization)
  Sender: FDA-Public Use
  Company Number: US-ELI_LILLY_AND_COMPANY-US200902002012

PATIENT
  Age: 28 Year
  Sex: Male

DRUGS (1)
  1. ZYPREXA [Suspect]
     Indication: DRUG DEPENDENCE
     Dosage: 2.5 MG, DAILY (1/D)

REACTIONS (2)
  - NAUSEA [None]
  - VOMITING [None]
